FAERS Safety Report 19645878 (Version 1)
Quarter: 2021Q3

REPORT INFORMATION
  Report Type: Report from Study
  Country: BR (occurrence: BR)
  Receive Date: 20210802
  Receipt Date: 20210802
  Transmission Date: 20211014
  Serious: Yes (Other)
  Sender: FDA-Public Use
  Company Number: NVSC2021BR168929

PATIENT
  Sex: Male

DRUGS (2)
  1. MEKINIST [Suspect]
     Active Substance: TRAMETINIB DIMETHYL SULFOXIDE
     Indication: MALIGNANT MELANOMA
     Dosage: UNK (START DATE IN FEB)
     Route: 065
  2. TAFINLAR [Suspect]
     Active Substance: DABRAFENIB MESYLATE
     Indication: MALIGNANT MELANOMA
     Dosage: UNK (START DATE IN FEB)
     Route: 065

REACTIONS (6)
  - Skin exfoliation [Unknown]
  - Skin mass [Unknown]
  - Granuloma [Unknown]
  - Hypersensitivity [Not Recovered/Not Resolved]
  - Inflammation [Unknown]
  - Pyrexia [Unknown]
